FAERS Safety Report 25429007 (Version 5)
Quarter: 2025Q3

REPORT INFORMATION
  Report Type: Spontaneous
  Country: US (occurrence: US)
  Receive Date: 20250612
  Receipt Date: 20250718
  Transmission Date: 20251020
  Serious: No
  Sender: PFIZER
  Company Number: US-PFIZER INC-202400223912

PATIENT
  Age: 6 Year
  Sex: Female
  Weight: 35.38 kg

DRUGS (1)
  1. GENOTROPIN [Suspect]
     Active Substance: SOMATROPIN
     Indication: Prader-Willi syndrome
     Dosage: 0.8 MG, DAILY (6 TIMES A WEEK)
     Route: 058
     Dates: start: 202303

REACTIONS (3)
  - Device power source issue [Unknown]
  - Drug dose omission by device [Unknown]
  - Device information output issue [Unknown]
